FAERS Safety Report 17501759 (Version 2)
Quarter: 2022Q3

REPORT INFORMATION
  Report Type: Spontaneous
  Country: US (occurrence: US)
  Receive Date: 20200305
  Receipt Date: 20220902
  Transmission Date: 20221027
  Serious: No
  Sender: FDA-Public Use
  Company Number: US-PFIZER INC-2019504857

PATIENT
  Age: 50 Year
  Sex: Female

DRUGS (2)
  1. TOVIAZ [Suspect]
     Active Substance: FESOTERODINE FUMARATE
     Indication: Cystitis interstitial
     Dosage: 8 MG, 1X/DAY (1 TAB ONCE A DAY)
     Route: 048
  2. TOVIAZ [Suspect]
     Active Substance: FESOTERODINE FUMARATE
     Indication: Haematuria

REACTIONS (2)
  - Off label use [Unknown]
  - Dyslexia [Unknown]
